FAERS Safety Report 18242832 (Version 2)
Quarter: 2022Q1

REPORT INFORMATION
  Report Type: Spontaneous
  Country: US (occurrence: US)
  Receive Date: 20200908
  Receipt Date: 20220314
  Transmission Date: 20220423
  Serious: No
  Sender: FDA-Public Use
  Company Number: US-PFIZER INC-2020345285

PATIENT
  Age: 51 Year
  Sex: Female

DRUGS (1)
  1. XELJANZ XR [Suspect]
     Active Substance: TOFACITINIB CITRATE
     Indication: Rheumatoid arthritis
     Dosage: 11 MG, DAILY
     Route: 048
     Dates: start: 2019

REACTIONS (7)
  - Urinary tract infection [Recovered/Resolved]
  - Fatigue [Unknown]
  - Arthralgia [Unknown]
  - Psoriasis [Unknown]
  - Pain [Unknown]
  - Headache [Not Recovered/Not Resolved]
  - Calculus urinary [Unknown]
